FAERS Safety Report 9915138 (Version 4)
Quarter: 2014Q3

REPORT INFORMATION
  Report Type: Spontaneous
  Country: IT (occurrence: IT)
  Receive Date: 20140220
  Receipt Date: 20140701
  Transmission Date: 20150326
  Serious: Yes (Hospitalization)
  Sender: FDA-Public Use
  Company Number: IT-ELI_LILLY_AND_COMPANY-IT201402003619

PATIENT
  Age: 71 Year
  Sex: Male

DRUGS (4)
  1. LEVEMIR [Suspect]
     Active Substance: INSULIN DETEMIR
     Indication: DIABETES MELLITUS
     Dosage: 1 DF, QD
     Route: 058
     Dates: start: 20100310
  2. HUMALOG [Suspect]
     Active Substance: INSULIN LISPRO
     Indication: DIABETES MELLITUS
     Dosage: 7 DF, QD
     Route: 058
     Dates: start: 20100310
  3. LEVEMIR [Suspect]
     Active Substance: INSULIN DETEMIR
     Dosage: 28 DF, QD
     Route: 058
     Dates: start: 20140117, end: 20140117
  4. HUMALOG [Suspect]
     Active Substance: INSULIN LISPRO
     Dosage: 41 U, QD
     Route: 058
     Dates: start: 20140117, end: 20140117

REACTIONS (4)
  - Agitation [Recovered/Resolved]
  - Hypoglycaemia [Recovered/Resolved]
  - Bradyphrenia [Unknown]
  - Bradykinesia [Recovered/Resolved]

NARRATIVE: CASE EVENT DATE: 20140117
